FAERS Safety Report 6955855-3 (Version None)
Quarter: 2010Q3

REPORT INFORMATION
  Report Type: 
  Country: None (occurrence: None)
  Receive Date: 20100830
  Receipt Date: 20100818
  Transmission Date: 20110219
  Serious: Yes (Other)
  Sender: FDA-Public Use
  Company Number: RO-WATSON-2010-11376

PATIENT
  Age: 51 Year
  Sex: Female

DRUGS (8)
  1. SULFASALAZINE [Suspect]
     Indication: PSORIATIC ARTHROPATHY
     Dosage: 2 G DAILY
     Dates: start: 20010101, end: 20060101
  2. SULFASALAZINE [Suspect]
     Dosage: 2 G DAILY
  3. METOPROLOL (WATSON LABORATORIES) [Suspect]
     Indication: HYPERTENSION
     Dosage: UNK
  4. INDAPAMIDE [Suspect]
     Indication: HYPERTENSION
     Dosage: UNK
  5. METFORMIN HCL [Suspect]
     Indication: DIABETES MELLITUS
     Dosage: UNK
  6. ENALAPRIL MALEATE [Suspect]
     Indication: HYPERTENSION
  7. INFLIXIMAB [Suspect]
     Indication: PSORIATIC ARTHROPATHY
     Dosage: 5 MG/KG
  8. LEFLUNOMIDE [Suspect]
     Indication: PSORIATIC ARTHROPATHY
     Dosage: 10 MG/DAY

REACTIONS (1)
  - LICHENOID KERATOSIS [None]
